FAERS Safety Report 6132388-8 (Version None)
Quarter: 2009Q1

REPORT INFORMATION
  Report Type: 
  Country: None (occurrence: None)
  Receive Date: 20090325
  Receipt Date: 20090318
  Transmission Date: 20090719
  Serious: Yes (Other)
  Sender: FDA-Public Use
  Company Number: PHHY2009MX10191

PATIENT
  Age: 84 Year
  Sex: Female

DRUGS (2)
  1. EXFORGE [Suspect]
     Indication: HYPERTENSION
     Dosage: 1/2 TABLET (160/5 MG) PER DAY
     Route: 048
     Dates: start: 20080501, end: 20090307
  2. EXFORGE [Suspect]
     Dosage: UNK
     Dates: start: 20090314

REACTIONS (3)
  - LIMB DISCOMFORT [None]
  - OEDEMA PERIPHERAL [None]
  - SCIATICA [None]
